FAERS Safety Report 5307458-4 (Version None)
Quarter: 2007Q2

REPORT INFORMATION
  Report Type: 
  Country: None (occurrence: None)
  Receive Date: 20070425
  Receipt Date: 20070416
  Transmission Date: 20071010
  Serious: Yes (Other)
  Sender: FDA-Public Use
  Company Number: JP-ROCHE-432982

PATIENT
  Age: 6 Year
  Sex: Female
  Weight: 17 kg

DRUGS (5)
  1. TAMIFLU [Suspect]
     Dosage: FORM: DRY SYRUP.
     Route: 048
     Dates: start: 20051219, end: 20051221
  2. PERIACTIN [Concomitant]
     Route: 048
     Dates: start: 20051216, end: 20051224
  3. ASVERIN [Concomitant]
     Route: 048
     Dates: start: 20051216, end: 20051224
  4. MUCODYNE [Concomitant]
     Dosage: DOSE FORM REPORTED AS: FINE GRANULE.
     Route: 048
     Dates: start: 20051216, end: 20051224
  5. HOKUNALIN [Concomitant]
     Dosage: FORM REPORTED AS TAPE.
     Route: 061
     Dates: start: 20051216, end: 20051224

REACTIONS (2)
  - ABNORMAL BEHAVIOUR [None]
  - DELIRIUM [None]
